FAERS Safety Report 7328436-X (Version None)
Quarter: 2011Q1

REPORT INFORMATION
  Report Type: 
  Country: None (occurrence: None)
  Receive Date: 20110223
  Receipt Date: 20110209
  Transmission Date: 20110831
  Serious: Yes (Hospitalization)
  Sender: FDA-Public Use
  Company Number: UTC-005174

PATIENT
  Age: 63 Year
  Sex: Male

DRUGS (5)
  1. DIURETICS (DIURETICS) [Concomitant]
  2. REVATIO [Concomitant]
  3. REMODULIN [Suspect]
     Dosage: 57.6 UG/KG (0.04 UG/KG, 1 IN 1 MIN), INTRAVENOUS
     Route: 042
     Dates: start: 20110120
  4. WARFARIN (WARFARIN) [Concomitant]
  5. LETAIRIS (AMBRISENTAN) [Concomitant]

REACTIONS (2)
  - DYSPNOEA [None]
  - WEIGHT INCREASED [None]
